FAERS Safety Report 5028732-5 (Version None)
Quarter: 2006Q2

REPORT INFORMATION
  Report Type: 
  Country: None (occurrence: None)
  Receive Date: 20060501
  Receipt Date: 20060222
  Transmission Date: 20061013
  Serious: No
  Sender: FDA-Public Use
  Company Number: 200610722US

PATIENT
  Age: 38 Year
  Sex: Female
  Weight: 453 kg

DRUGS (6)
  1. KETEK [Suspect]
     Indication: PHARYNGITIS
     Dosage: 800 MG PO
     Route: 048
     Dates: start: 20060117, end: 20060117
  2. ALLEGRA [Concomitant]
  3. BECLOMETASONE DIPROPIONATE (QVAR) [Concomitant]
  4. FLUTICASONE PROPIONATE (FLONASE) [Concomitant]
  5. MAXAIR [Concomitant]
  6. GAIFENESIN [Concomitant]

REACTIONS (1)
  - DIZZINESS [None]
